FAERS Safety Report 23271159 (Version 3)
Quarter: 2024Q1

REPORT INFORMATION
  Report Type: Report from Study
  Country: CA (occurrence: CA)
  Receive Date: 20231207
  Receipt Date: 20240102
  Transmission Date: 20240409
  Serious: Yes (Death, Other)
  Sender: FDA-Public Use
  Company Number: CA-AstraZeneca-2023A275732

PATIENT
  Sex: Female

DRUGS (1)
  1. ENHERTU [Suspect]
     Active Substance: FAM-TRASTUZUMAB DERUXTECAN-NXKI
     Indication: HER2 low breast cancer
     Dosage: 444 MG, ONCE EVERY 3 WK
     Route: 042
     Dates: start: 20231110

REACTIONS (2)
  - Death [Fatal]
  - Sepsis [Unknown]
